FAERS Safety Report 7483810-6 (Version None)
Quarter: 2011Q2

REPORT INFORMATION
  Report Type: 
  Country: None (occurrence: None)
  Receive Date: 20110513
  Receipt Date: 20110513
  Transmission Date: 20111010
  Serious: Yes (Hospitalization)
  Sender: FDA-Public Use
  Company Number: None

PATIENT
  Sex: Male
  Weight: 30 kg

DRUGS (3)
  1. VINCRISTINE SULFATE [Suspect]
     Dosage: 3 MG
  2. MESNA [Suspect]
     Dosage: 720 MG
  3. CYCLOPHOSPHAMIDE [Suspect]
     Dosage: 2000 MG

REACTIONS (6)
  - ACUTE RESPIRATORY DISTRESS SYNDROME [None]
  - ESCHERICHIA INFECTION [None]
  - MULTI-ORGAN FAILURE [None]
  - NEUTROPENIA [None]
  - SEPTIC SHOCK [None]
  - PYREXIA [None]
